FAERS Safety Report 5498489-2 (Version None)
Quarter: 2007Q4

REPORT INFORMATION
  Report Type: 
  Country: None (occurrence: None)
  Receive Date: 20071024
  Receipt Date: 20071024
  Transmission Date: 20080405
  Serious: No
  Sender: FDA-Public Use
  Company Number: None

PATIENT
  Sex: Female
  Weight: 63.5036 kg

DRUGS (1)
  1. MAGNEVIST [Suspect]
     Indication: SURGERY
     Dosage: 14 CC'S HAND INJECTED R AC

REACTIONS (2)
  - PRURITUS [None]
  - URTICARIA [None]
